FAERS Safety Report 24282071 (Version 1)
Quarter: 2024Q3

REPORT INFORMATION
  Report Type: Spontaneous
  Country: US (occurrence: US)
  Receive Date: 20240904
  Receipt Date: 20240904
  Transmission Date: 20241017
  Serious: No
  Sender: MYLAN
  Company Number: US-MYLANLABS-2024M1080171

PATIENT
  Sex: Female

DRUGS (1)
  1. TYRVAYA [Suspect]
     Active Substance: VARENICLINE TARTRATE
     Indication: Sjogren^s syndrome
     Dosage: 0.03 MILLIGRAM, BID
     Route: 065

REACTIONS (2)
  - Therapeutic response shortened [Unknown]
  - Therapeutic response unexpected [Unknown]
